FAERS Safety Report 4598601-3 (Version None)
Quarter: 2005Q1

REPORT INFORMATION
  Report Type: 
  Country: None (occurrence: None)
  Receive Date: 20050304
  Receipt Date: 20050221
  Transmission Date: 20050727
  Serious: Yes (Life-Threatening, Hospitalization)
  Sender: FDA-Public Use
  Company Number: GB-ROCHE-396297

PATIENT
  Age: 80 Year
  Sex: Female

DRUGS (6)
  1. TAMIFLU [Suspect]
     Indication: INFLUENZA
     Route: 048
     Dates: start: 20050126, end: 20050130
  2. FOLIC ACID [Concomitant]
     Dosage: DOSE STATED AS 5 MG MANE.
  3. CELEBREX [Concomitant]
  4. ADALAT [Concomitant]
     Dosage: DOSE STATED AS ^MR^ 30 MG.
  5. CO-CODAMOL [Concomitant]
     Dosage: STRENGTH STATED AS 8/500, 1-2 FOUR TIMES DAILY AS REQUIRED.
  6. LANSOPRAZOLE [Concomitant]
     Dosage: DOSE STATED AS 15 MG MANE.

REACTIONS (2)
  - RENAL FAILURE [None]
  - URINE ODOUR ABNORMAL [None]
